FAERS Safety Report 13065168 (Version 2)
Quarter: 2017Q1

REPORT INFORMATION
  Report Type: Spontaneous
  Country: JP (occurrence: JP)
  Receive Date: 20161227
  Receipt Date: 20170125
  Transmission Date: 20170428
  Serious: Yes (Death, Hospitalization)
  Sender: FDA-Public Use
  Company Number: JP-CELGENEUS-JPN-2016123967

PATIENT
  Sex: Male

DRUGS (1)
  1. REVLIMID [Suspect]
     Active Substance: LENALIDOMIDE
     Indication: PLASMA CELL MYELOMA
     Route: 048
     Dates: start: 20150819, end: 20161213

REACTIONS (4)
  - Multiple organ dysfunction syndrome [Fatal]
  - Subileus [Unknown]
  - Herpes zoster disseminated [Unknown]
  - Plasma cell myeloma [Unknown]
